FAERS Safety Report 23938425 (Version 1)
Quarter: 2024Q2

REPORT INFORMATION
  Report Type: Report from Study
  Country: US (occurrence: US)
  Receive Date: 20240604
  Receipt Date: 20240604
  Transmission Date: 20240716
  Serious: Yes (Hospitalization, Other)
  Sender: FDA-Public Use
  Company Number: US-AMGEN-HZN-2024-005414

PATIENT
  Age: 75 Year
  Sex: Female

DRUGS (4)
  1. KRYSTEXXA [Suspect]
     Active Substance: PEGLOTICASE
     Indication: Product used for unknown indication
     Dosage: FIRST INFUSION
     Route: 042
     Dates: start: 20240326
  2. PREDNISONE [Suspect]
     Active Substance: PREDNISONE
     Indication: Product used for unknown indication
     Dosage: UNK UNK, QD
     Route: 042
     Dates: start: 2024, end: 2024
  3. PREDNISONE [Suspect]
     Active Substance: PREDNISONE
     Dosage: 10 MILLIGRAM, QD, DOSE REDUCED
     Route: 042
     Dates: start: 2024
  4. LEFLUNOMIDE [Concomitant]
     Active Substance: LEFLUNOMIDE
     Dosage: UNK

REACTIONS (6)
  - Atrial fibrillation [Unknown]
  - Pneumonia [Unknown]
  - Blood glucose increased [Unknown]
  - Blood pressure increased [Unknown]
  - Gout [Unknown]
  - Fall [Unknown]

NARRATIVE: CASE EVENT DATE: 20240101
